FAERS Safety Report 17591214 (Version 2)
Quarter: 2020Q2

REPORT INFORMATION
  Report Type: Report from Study
  Country: DE (occurrence: DE)
  Receive Date: 20200327
  Receipt Date: 20200609
  Transmission Date: 20200713
  Serious: Yes (Other)
  Sender: FDA-Public Use
  Company Number: PHHY2017DE036768

PATIENT
  Sex: Female
  Weight: 66 kg

DRUGS (15)
  1. COSENTYX [Suspect]
     Active Substance: SECUKINUMAB
     Dosage: 300 MG, (PER APPLICATION)
     Route: 065
     Dates: start: 20161231
  2. PREDNISOLONE. [Concomitant]
     Active Substance: PREDNISOLONE
     Dosage: 5 MG, QD
     Route: 048
     Dates: start: 20170220
  3. VITAMIN B12 [Concomitant]
     Active Substance: CYANOCOBALAMIN
     Indication: ANAEMIA VITAMIN B12 DEFICIENCY
     Dosage: 1000 UG, QMO
     Route: 030
  4. BENEPALI [Concomitant]
     Active Substance: ETANERCEPT
     Indication: PSORIATIC ARTHROPATHY
     Dosage: 50 MG, QW
     Route: 058
     Dates: start: 20170505
  5. COSENTYX [Suspect]
     Active Substance: SECUKINUMAB
     Indication: PSORIATIC ARTHROPATHY
     Dosage: 300 MG, (PER APPLICATION)
     Route: 065
     Dates: start: 20161203, end: 20170407
  6. PREDNISOLONE. [Concomitant]
     Active Substance: PREDNISOLONE
     Indication: PSORIATIC ARTHROPATHY
     Dosage: 7 MG, QD
     Route: 048
     Dates: start: 20161202
  7. DICLAC [Concomitant]
     Active Substance: DICLOFENAC
     Indication: PSORIATIC ARTHROPATHY
     Dosage: 75 MG, QD (AS NEEDED)
     Route: 048
     Dates: start: 20161202
  8. TILIDIN [Concomitant]
     Active Substance: NALOXONE HYDROCHLORIDE\TILIDINE HYDROCHLORIDE
     Indication: PSORIATIC ARTHROPATHY
     Dosage: 2 DF, QD
     Route: 048
     Dates: start: 20161202, end: 201701
  9. PANTOPRAZOLE [Concomitant]
     Active Substance: PANTOPRAZOLE
     Indication: PROPHYLAXIS
     Dosage: 40 MG, QD
     Route: 048
  10. COSENTYX [Suspect]
     Active Substance: SECUKINUMAB
     Dosage: 300 MG, (PER APPLICATION)
     Route: 065
     Dates: start: 20161217
  11. METEX [Concomitant]
     Indication: PSORIATIC ARTHROPATHY
     Dosage: 10 UNK, QW
     Route: 048
     Dates: start: 20160620
  12. COSENTYX [Suspect]
     Active Substance: SECUKINUMAB
     Dosage: 300 MG, (PER APPLICATION)
     Route: 065
     Dates: start: 20161224
  13. FOLIC ACID. [Concomitant]
     Active Substance: FOLIC ACID
     Indication: PRODUCT USED FOR UNKNOWN INDICATION
     Dosage: 5 MG, QW
     Route: 048
     Dates: start: 20160620
  14. ZALDIAR [Concomitant]
     Active Substance: ACETAMINOPHEN\TRAMADOL HYDROCHLORIDE
     Indication: PSORIATIC ARTHROPATHY
     Dosage: 1 DF, QD (AS NEEDED)
     Route: 048
     Dates: start: 20170113, end: 20170126
  15. DEKRISTOL [Concomitant]
     Active Substance: CHOLECALCIFEROL
     Indication: OSTEOPENIA
     Dosage: 20000 IU, QW
     Route: 048

REACTIONS (3)
  - Cough [Not Recovered/Not Resolved]
  - Musculoskeletal discomfort [Not Recovered/Not Resolved]
  - Campylobacter gastroenteritis [Recovered/Resolved]

NARRATIVE: CASE EVENT DATE: 20170123
